FAERS Safety Report 13473348 (Version 1)
Quarter: 2017Q2

REPORT INFORMATION
  Report Type: Spontaneous
  Country: US (occurrence: US)
  Receive Date: 20170424
  Receipt Date: 20170424
  Transmission Date: 20170830
  Serious: No
  Sender: FDA-Public Use
  Company Number: US-CELGENEUS-USA-20170404111

PATIENT
  Sex: Female

DRUGS (1)
  1. OTEZLA [Suspect]
     Active Substance: APREMILAST
     Indication: PSORIASIS
     Dosage: 60 MILLIGRAM
     Route: 048
     Dates: start: 20170405

REACTIONS (7)
  - Diarrhoea [Unknown]
  - Headache [Unknown]
  - Impaired work ability [Unknown]
  - Abnormal dreams [Unknown]
  - Asthenia [Unknown]
  - Nausea [Unknown]
  - Sleep disorder [Unknown]
